FAERS Safety Report 9256936 (Version 1)
Quarter: 2013Q2

REPORT INFORMATION
  Report Type: Spontaneous
  Country: GB (occurrence: None)
  Receive Date: 20130423
  Receipt Date: 20130423
  Transmission Date: 20140414
  Serious: Yes (Hospitalization)
  Sender: FDA-Public Use
  Company Number: SP06583

PATIENT
  Age: 66 Year
  Sex: Male
  Weight: 70 kg

DRUGS (19)
  1. XIFAXAN [Suspect]
     Indication: MALABSORPTION
     Dosage: (1 GM,2 IN 1 D)
     Route: 048
     Dates: start: 20130319, end: 20130329
  2. ALFACALCIDOL [Concomitant]
  3. ALLOPURINOL [Concomitant]
  4. ATORVASTATIN [Concomitant]
  5. BENDROFLUMETHIAZIDE [Concomitant]
  6. BISOPROLOL [Concomitant]
  7. CANDESARTAN [Concomitant]
  8. DARBEPOETIN [Concomitant]
  9. FERROUS FUMARATE [Concomitant]
  10. FOLIC ACID [Concomitant]
  11. GLICLAZIDE [Concomitant]
  12. LANSOPRAZOLE [Concomitant]
  13. MYCOPHENOLATE [Concomitant]
  14. NIFEDIPINE [Concomitant]
  15. PREDNISOLONE [Concomitant]
  16. SODIUM BICARBONATE [Concomitant]
  17. TACROLIMUS [Concomitant]
  18. WARFARIN [Concomitant]
  19. VITAMN B12 [Concomitant]

REACTIONS (3)
  - International normalised ratio increased [None]
  - Haemorrhage subcutaneous [None]
  - Haemoglobin decreased [None]
